FAERS Safety Report 20044308 (Version 1)
Quarter: 2021Q4

REPORT INFORMATION
  Report Type: Spontaneous
  Country: CN (occurrence: None)
  Receive Date: 20211108
  Receipt Date: 20211108
  Transmission Date: 20220303
  Serious: Yes (Other)
  Sender: FDA-Public Use
  Company Number: 2021A795134

PATIENT
  Age: 32188 Day
  Sex: Male

DRUGS (2)
  1. QUETIAPINE FUMARATE [Suspect]
     Active Substance: QUETIAPINE FUMARATE
     Indication: Mental disorder
     Route: 048
     Dates: start: 20210924, end: 20211026
  2. CEFOTAXIME SODIUM\SULBACTAM SODIUM [Suspect]
     Active Substance: CEFOTAXIME SODIUM\SULBACTAM SODIUM
     Indication: Pneumonia
     Route: 041
     Dates: start: 20210924, end: 20210930

REACTIONS (1)
  - Hepatic function abnormal [Recovering/Resolving]

NARRATIVE: CASE EVENT DATE: 20210930
